FAERS Safety Report 5415299-2 (Version None)
Quarter: 2007Q3

REPORT INFORMATION
  Report Type: 
  Country: None (occurrence: None)
  Receive Date: 20070815
  Receipt Date: 20070810
  Transmission Date: 20080115
  Serious: Yes (Hospitalization, Other)
  Sender: FDA-Public Use
  Company Number: US-ASTRAZENECA-2007UW08602

PATIENT
  Age: 55 Year
  Sex: Female
  Weight: 92.1 kg

DRUGS (3)
  1. ARIMIDEX [Suspect]
     Indication: BREAST CANCER STAGE IV
     Route: 048
  2. ZOMETA [Concomitant]
  3. FASLODEX [Concomitant]

REACTIONS (3)
  - JOINT SPRAIN [None]
  - PULMONARY EMBOLISM [None]
  - TUMOUR MARKER INCREASED [None]
